FAERS Safety Report 10230512 (Version 1)
Quarter: 2014Q2

REPORT INFORMATION
  Report Type: Spontaneous
  Country: US (occurrence: US)
  Receive Date: 20140611
  Receipt Date: 20140611
  Transmission Date: 20141212
  Serious: No
  Sender: FDA-Public Use
  Company Number: US-INCYTE CORPORATION-2014IN001084

PATIENT
  Age: 74 Year
  Sex: Female
  Weight: 89.34 kg

DRUGS (11)
  1. JAKAFI [Suspect]
     Indication: MYELOFIBROSIS
     Dosage: 10 MG, BID
     Route: 048
     Dates: start: 20131118, end: 20140419
  2. LOPRESSOR [Concomitant]
  3. HYDROCHLOROTHIAZIDE [Concomitant]
  4. ARIMIDEX [Concomitant]
  5. LEVOTHYROXINE [Concomitant]
  6. MIRALAX                            /00754501/ [Concomitant]
  7. ASPIRIN [Concomitant]
  8. COLCHICINE [Concomitant]
  9. FISH OIL [Concomitant]
  10. IRON [Concomitant]
  11. MULTIVITAMIN                       /00097801/ [Concomitant]

REACTIONS (1)
  - Adverse event [Unknown]
